FAERS Safety Report 5780835-3 (Version None)
Quarter: 2008Q2

REPORT INFORMATION
  Report Type: 
  Country: None (occurrence: None)
  Receive Date: 20080620
  Receipt Date: 20080610
  Transmission Date: 20081010
  Serious: Yes (Other)
  Sender: FDA-Public Use
  Company Number: GB-PFIZER INC-2007083607

PATIENT
  Sex: Male
  Weight: 87 kg

DRUGS (3)
  1. GABAPENTIN [Suspect]
  2. LYRICA [Suspect]
     Indication: NEURALGIA
     Route: 048
  3. LANSOPRAZOLE [Concomitant]
     Route: 048

REACTIONS (7)
  - DIPLOPIA [None]
  - DYSURIA [None]
  - FEELING COLD [None]
  - FEELING HOT [None]
  - FLUID RETENTION [None]
  - RETINAL DEGENERATION [None]
  - WEIGHT INCREASED [None]
